FAERS Safety Report 23290006 (Version 1)
Quarter: 2023Q4

REPORT INFORMATION
  Report Type: Report from Study
  Country: US (occurrence: US)
  Receive Date: 20231212
  Receipt Date: 20231212
  Transmission Date: 20240110
  Serious: Yes (Other)
  Sender: FDA-Public Use
  Company Number: US-ABBVIE-5532059

PATIENT
  Sex: Female

DRUGS (2)
  1. SKYRIZI [Suspect]
     Active Substance: RISANKIZUMAB-RZAA
     Indication: Psoriasis
     Dosage: TIME INTERVAL: TOTAL: WEEK 0?SKYRIZI FORM STRENGTH: 150MG/ML
     Route: 058
     Dates: start: 20230825, end: 20230825
  2. SKYRIZI [Suspect]
     Active Substance: RISANKIZUMAB-RZAA
     Dosage: WEEK 4?SKYRIZI FORM STRENGTH: 150MG/ML
     Route: 058
     Dates: start: 20230927

REACTIONS (4)
  - Implant site infection [Unknown]
  - Dental restoration failure [Unknown]
  - Hyperhidrosis [Unknown]
  - Psoriasis [Not Recovered/Not Resolved]

NARRATIVE: CASE EVENT DATE: 20230101
